FAERS Safety Report 8947397 (Version 1)
Quarter: 2012Q4

REPORT INFORMATION
  Report Type: 
  Country: US (occurrence: US)
  Receive Date: 20121205
  Receipt Date: 20121205
  Transmission Date: 20130627
  Serious: Yes (Other)
  Sender: FDA-Public Use
  Company Number: US-PFIZER INC-2012301862

PATIENT
  Age: 43 Year
  Sex: Male
  Weight: 132 kg

DRUGS (3)
  1. VIAGRA [Suspect]
     Indication: ERECTILE DYSFUNCTION
     Dosage: 50 mg, UNK
     Dates: start: 2012
  2. CARDIZEM [Concomitant]
     Indication: HYPERTENSION
     Dosage: 360 mg, daily
  3. LABETALOL [Concomitant]
     Indication: HYPERTENSION
     Dosage: 200 mg, 2x/day

REACTIONS (1)
  - Sleep apnoea syndrome [Recovered/Resolved]
